FAERS Safety Report 23489162 (Version 2)
Quarter: 2024Q1

REPORT INFORMATION
  Report Type: Spontaneous
  Country: US (occurrence: US)
  Receive Date: 20240206
  Receipt Date: 20240320
  Transmission Date: 20240410
  Serious: Yes (Other)
  Sender: FDA-Public Use
  Company Number: US-LEX-000159

PATIENT
  Sex: Female
  Weight: 98.43 kg

DRUGS (1)
  1. INPEFA [Suspect]
     Active Substance: SOTAGLIFLOZIN
     Indication: Product used for unknown indication
     Route: 048
     Dates: start: 20231215

REACTIONS (3)
  - Cellulitis [Not Recovered/Not Resolved]
  - Pain in extremity [Unknown]
  - Therapeutic response unexpected [Unknown]
